FAERS Safety Report 18025723 (Version 1)
Quarter: 2020Q3

REPORT INFORMATION
  Report Type: Spontaneous
  Country: FR (occurrence: FR)
  Receive Date: 20200715
  Receipt Date: 20200715
  Transmission Date: 20201103
  Serious: Yes (Hospitalization)
  Sender: FDA-Public Use
  Company Number: FR-PFIZER INC-2020265508

PATIENT
  Age: 49 Year
  Sex: Male
  Weight: 78 kg

DRUGS (11)
  1. LEVOFLOXACIN. [Suspect]
     Active Substance: LEVOFLOXACIN
     Indication: OSTEOMYELITIS
     Dosage: 750 MG, 1X/DAY
     Route: 048
     Dates: start: 20200414, end: 20200515
  2. DALACINE [Suspect]
     Active Substance: CLINDAMYCIN
     Indication: OSTEOMYELITIS
     Dosage: 1800 MG, 1X/DAY
     Route: 048
     Dates: start: 20200402, end: 20200515
  3. CONTRAMAL [Concomitant]
     Active Substance: TRAMADOL HYDROCHLORIDE
     Indication: PAIN
     Dosage: UNK (100 MG EVERY 6 HOURS IF PAIN)
     Route: 048
     Dates: start: 20200219
  4. AMLODIPINE [Concomitant]
     Active Substance: AMLODIPINE BESYLATE
     Indication: HYPERTENSION
     Dosage: 10 MG, 1X/DAY
     Route: 048
  5. SODIUM BICARBONATE. [Concomitant]
     Active Substance: SODIUM BICARBONATE
     Indication: NEPHROPATHY TOXIC
     Dosage: 1000 MG, 1X/DAY
     Route: 048
  6. METFORMINE [METFORMIN] [Concomitant]
     Active Substance: METFORMIN HYDROCHLORIDE
     Indication: TYPE 2 DIABETES MELLITUS
     Dosage: 1000 MG, 1X/DAY
     Route: 048
  7. DOLIPRANE [Concomitant]
     Active Substance: ACETAMINOPHEN
     Indication: PAIN
     Dosage: UNK (1G EVERY 8H IF PAIN)
     Route: 048
     Dates: start: 20200219
  8. IOMERON [Suspect]
     Active Substance: IOMEPROL
     Indication: SCAN WITH CONTRAST
     Dosage: 1 DF, SINGLE
     Route: 042
     Dates: start: 20200415, end: 20200415
  9. TAZOCILLINE [Concomitant]
     Active Substance: PIPERACILLIN SODIUM\TAZOBACTAM SODIUM
     Indication: OSTEOMYELITIS
     Dosage: 3 DF, 1X/DAY
     Route: 042
     Dates: start: 20200515, end: 20200602
  10. DAPTOMYCINE [Concomitant]
     Active Substance: DAPTOMYCIN
     Indication: OSTEOMYELITIS
     Dosage: 500 MG, 1X/DAY
     Route: 042
     Dates: start: 20200515, end: 20200602
  11. GLICLAZIDE [Concomitant]
     Active Substance: GLICLAZIDE
     Indication: TYPE 2 DIABETES MELLITUS
     Dosage: 30 MG, 1X/DAY
     Route: 048

REACTIONS (3)
  - Product use issue [Unknown]
  - Off label use [Unknown]
  - Acute kidney injury [Recovering/Resolving]

NARRATIVE: CASE EVENT DATE: 20200402
